FAERS Safety Report 16751868 (Version 1)
Quarter: 2019Q3

REPORT INFORMATION
  Report Type: Spontaneous
  Country: US (occurrence: US)
  Receive Date: 20190828
  Receipt Date: 20190828
  Transmission Date: 20191005
  Serious: No
  Sender: FDA-Public Use
  Company Number: US-ENDO PHARMACEUTICALS INC-2019-102851

PATIENT
  Sex: Female
  Weight: 95.25 kg

DRUGS (1)
  1. PREDNISONE. [Suspect]
     Active Substance: PREDNISONE
     Indication: DYSPNOEA
     Dosage: 40 MG, DAILY
     Route: 048

REACTIONS (5)
  - Feeling abnormal [Unknown]
  - Cardiac disorder [Unknown]
  - Gastric disorder [Unknown]
  - Eye disorder [Unknown]
  - Blood glucose increased [Unknown]
